FAERS Safety Report 22222640 (Version 2)
Quarter: 2023Q2

REPORT INFORMATION
  Report Type: Report from Study
  Country: KR (occurrence: KR)
  Receive Date: 20230418
  Receipt Date: 20230510
  Transmission Date: 20230722
  Serious: Yes (Other)
  Sender: FDA-Public Use
  Company Number: KR-KOREA IPSEN Pharma-2021-11514

PATIENT

DRUGS (10)
  1. CABOZANTINIB [Suspect]
     Active Substance: CABOZANTINIB
     Indication: Clear cell renal cell carcinoma
     Dosage: 40 MG, QD
     Route: 048
     Dates: start: 20210303
  2. SYNTHROID [Concomitant]
     Active Substance: LEVOTHYROXINE SODIUM
     Indication: Hypothyroidism
     Dosage: 1 {DF}, QD
     Route: 048
     Dates: start: 20210112
  3. URSODIOL [Concomitant]
     Active Substance: URSODIOL
     Indication: Prophylaxis
     Dosage: 1 {DF}, ONE TABLET THREE TIMES PER DAY
     Route: 048
     Dates: start: 20210317, end: 20210406
  4. Godex [Concomitant]
     Indication: Prophylaxis
     Dosage: 1 {DF}, ONE CAPSULE TWICE PER DAY
     Route: 048
     Dates: start: 20210317, end: 20210406
  5. Mypol [Concomitant]
     Indication: Cancer pain
     Dosage: 1 CAPSULE PER DAY
     Route: 048
     Dates: start: 20210329, end: 20210404
  6. Suspen [Concomitant]
     Indication: Cancer pain
     Dosage: 1 {DF}, ONE TABLET THREE TIMES PER DAY
     Route: 048
     Dates: start: 20210426, end: 20210727
  7. NEURONTIN [Concomitant]
     Active Substance: GABAPENTIN
     Indication: Neuropathy peripheral
     Dosage: UNK
     Dates: start: 20211006, end: 20211105
  8. EXFORGE [Concomitant]
     Active Substance: AMLODIPINE BESYLATE\VALSARTAN
     Indication: Hypertension
     Dosage: UNK
     Dates: start: 20210426
  9. DIOVAN [Concomitant]
     Active Substance: VALSARTAN
     Indication: Hypertension
     Dosage: UNK
     Dates: start: 20210329, end: 20210425
  10. NORVASC [Concomitant]
     Active Substance: AMLODIPINE BESYLATE
     Indication: Hypertension
     Dosage: UNK
     Dates: start: 20210317, end: 20210328

REACTIONS (2)
  - Neuropathy peripheral [Recovered/Resolved]
  - Hypertension [Recovering/Resolving]

NARRATIVE: CASE EVENT DATE: 20210317
